FAERS Safety Report 6974476-X (Version None)
Quarter: 2010Q3

REPORT INFORMATION
  Report Type: 
  Country: None (occurrence: None)
  Receive Date: 20100909
  Receipt Date: 20081201
  Transmission Date: 20110219
  Serious: Yes (Disabling, Other)
  Sender: FDA-Public Use
  Company Number: US-WYE-H06418908

PATIENT
  Age: 54 Year
  Sex: Female
  Weight: 55.84 kg

DRUGS (3)
  1. TORISEL [Suspect]
     Indication: RENAL CELL CARCINOMA
     Route: 042
     Dates: start: 20080925, end: 20081006
  2. TORISEL [Suspect]
     Route: 042
     Dates: start: 20080101
  3. LEVOTHYROXINE SODIUM [Concomitant]
     Indication: HYPOTHYROIDISM
     Route: 048

REACTIONS (1)
  - MUCOSAL INFLAMMATION [None]
